FAERS Safety Report 9353462 (Version 2)
Quarter: 2014Q3

REPORT INFORMATION
  Report Type: Spontaneous
  Country: DK (occurrence: DK)
  Receive Date: 20130618
  Receipt Date: 20140717
  Transmission Date: 20150326
  Serious: Yes (Other)
  Sender: FDA-Public Use
  Company Number: DK-PFIZER INC-2013182008

PATIENT
  Age: 71 Year
  Sex: Male

DRUGS (3)
  1. GABAPENTIN. [Suspect]
     Active Substance: GABAPENTIN
     Indication: MUSCLE SPASMS
     Dosage: 300 MG, 2X/DAY
     Route: 048
     Dates: start: 20100705
  2. IMIPRAMINE [Concomitant]
     Active Substance: IMIPRAMINE
     Indication: NEURALGIA
     Dosage: 25 MG, 4X/DAY
  3. GABAPENTIN. [Suspect]
     Active Substance: GABAPENTIN
     Indication: SENSORY DISTURBANCE
     Dosage: AS NEEDED, MAXIMUM 10 CAPSULES A DAY
     Dates: start: 20101006, end: 201010

REACTIONS (6)
  - Enamel anomaly [Not Recovered/Not Resolved]
  - Tooth disorder [Not Recovered/Not Resolved]
  - Loose tooth [Not Recovered/Not Resolved]
  - Tooth fracture [Not Recovered/Not Resolved]
  - Off label use [Unknown]
  - Dental caries [Unknown]

NARRATIVE: CASE EVENT DATE: 20100705
